FAERS Safety Report 8360639-8 (Version None)
Quarter: 2012Q2

REPORT INFORMATION
  Report Type: 
  Country: None (occurrence: None)
  Receive Date: 20120514
  Receipt Date: 20120514
  Transmission Date: 20120825
  Serious: Yes (Death)
  Sender: FDA-Public Use
  Company Number: None

PATIENT
  Age: 56 Year
  Sex: Female
  Weight: 129.4 kg

DRUGS (7)
  1. PALONOSECTRON [Concomitant]
  2. PACLITAXEL [Suspect]
     Indication: TONGUE NEOPLASM MALIGNANT STAGE UNSPECIFIED
     Dosage: 132 MG IV X1 (80 MG/M2)
     Route: 042
     Dates: start: 20120504
  3. CARBOPLATIN [Suspect]
     Indication: TONGUE NEOPLASM MALIGNANT STAGE UNSPECIFIED
     Dosage: 177 MG IV X1 (2 AUC)
     Route: 042
     Dates: start: 20120504
  4. RANITIDINE [Concomitant]
  5. DEXAMETHASONE [Concomitant]
  6. CETUXIMAB [Suspect]
     Indication: TONGUE NEOPLASM MALIGNANT STAGE UNSPECIFIED
     Dosage: 412 MG IV X1 (250 MG/M2)
     Dates: start: 20120504
  7. DIPHENHYDRAMINE HCL [Concomitant]

REACTIONS (1)
  - DEATH [None]
